FAERS Safety Report 10391784 (Version 2)
Quarter: 2014Q3

REPORT INFORMATION
  Report Type: Spontaneous
  Country: JP (occurrence: JP)
  Receive Date: 20140819
  Receipt Date: 20140901
  Transmission Date: 20150326
  Serious: Yes (Hospitalization)
  Sender: FDA-Public Use
  Company Number: JP-ORION CORPORATION ORION PHARMA-ENT 2014-0120

PATIENT
  Age: 80 Year
  Sex: Male

DRUGS (5)
  1. COMTAN [Suspect]
     Active Substance: ENTACAPONE
     Indication: PARKINSON^S DISEASE
     Route: 048
     Dates: end: 20140726
  2. E C DOPAL [Concomitant]
     Route: 048
     Dates: end: 20140726
  3. E C DOPAL [Concomitant]
     Route: 048
     Dates: start: 20140815
  4. COMTAN [Suspect]
     Active Substance: ENTACAPONE
     Route: 048
     Dates: start: 20140815
  5. DOPASTON [Concomitant]
     Active Substance: LEVODOPA
     Route: 065

REACTIONS (3)
  - Pneumonia [Recovered/Resolved]
  - Dysphagia [Unknown]
  - Condition aggravated [Unknown]

NARRATIVE: CASE EVENT DATE: 20140726
